FAERS Safety Report 21078073 (Version 1)
Quarter: 2022Q3

REPORT INFORMATION
  Report Type: Report from Study
  Country: GB (occurrence: GB)
  Receive Date: 20220713
  Receipt Date: 20220713
  Transmission Date: 20221026
  Serious: Yes (Hospitalization)
  Sender: FDA-Public Use
  Company Number: GB-PFIZER INC-PV202200020101

PATIENT
  Age: 71 Year
  Sex: Male
  Weight: 65 kg

DRUGS (14)
  1. FLUOROURACIL [Suspect]
     Active Substance: FLUOROURACIL
     Indication: Neoplasm
     Dosage: 400 MG, CYCLIC (EVERY 2 WEEKS)
     Route: 042
     Dates: start: 20220512
  2. OXALIPLATIN [Suspect]
     Active Substance: OXALIPLATIN
     Indication: Neoplasm
     Dosage: 85 MG, CYCLIC (EVERY 2 WEEKS)
     Dates: start: 20220512
  3. UCB-6114 [Suspect]
     Active Substance: UCB-6114
     Indication: Neoplasm
     Dosage: 500 MG, CYCLIC (EVERY 2 WEEKS)
     Route: 042
     Dates: start: 20220512
  4. LEUCOVORIN CALCIUM [Suspect]
     Active Substance: LEUCOVORIN CALCIUM
     Indication: Neoplasm
     Dosage: 400 MG, CYCLIC (EVERY 2 WEEKS)
     Route: 042
     Dates: start: 20220512
  5. ACETAMINOPHEN [Concomitant]
     Active Substance: ACETAMINOPHEN
  6. MORPHINE SULFATE [Concomitant]
     Active Substance: MORPHINE SULFATE
  7. SENNA [Concomitant]
     Active Substance: SENNA LEAF\SENNOSIDES\SENNOSIDES A AND B
  8. POLYETHYLENE GLYCOL 3350\POTASSIUM CHLORIDE\SODIUM BICARBONATE\SODIUM [Concomitant]
     Active Substance: POLYETHYLENE GLYCOL 3350\POTASSIUM CHLORIDE\SODIUM BICARBONATE\SODIUM CHLORIDE
  9. LANSOPRAZOLE [Concomitant]
     Active Substance: LANSOPRAZOLE
  10. BUTYLSCOPOLAMINE BROMIDE [Concomitant]
     Active Substance: BUTYLSCOPOLAMINE BROMIDE
  11. MAGNESIUM [Concomitant]
     Active Substance: MAGNESIUM
  12. GELCLAIR [HYALURONATE SODIUM;POVIDONE] [Concomitant]
     Dosage: UNK
     Dates: start: 20220526
  13. MIRTAZAPINE [Concomitant]
     Active Substance: MIRTAZAPINE
     Dosage: UNK
     Dates: start: 20220602
  14. METOCLOPRAMIDE [Concomitant]
     Active Substance: METOCLOPRAMIDE
     Dosage: UNK
     Dates: start: 20220609

REACTIONS (2)
  - Vascular access complication [Recovered/Resolved]
  - Neutropenic sepsis [Not Recovered/Not Resolved]

NARRATIVE: CASE EVENT DATE: 20220615
